FAERS Safety Report 8229216-3 (Version None)
Quarter: 2012Q1

REPORT INFORMATION
  Report Type: 
  Country: None (occurrence: None)
  Receive Date: 20120322
  Receipt Date: 20120312
  Transmission Date: 20120608
  Serious: Yes (Other)
  Sender: FDA-Public Use
  Company Number: US-MYLANLABS-2012S1004309

PATIENT
  Age: 68 Year
  Sex: Female
  Weight: 90.72 kg

DRUGS (14)
  1. PRED FORTE [Suspect]
     Indication: EYE OEDEMA
  2. TOBRAMYCIN [Suspect]
     Indication: EYE OEDEMA
  3. PROPYLENE GLYCOL [Suspect]
     Indication: EYE OEDEMA
  4. NAPROXEN [Suspect]
     Indication: ARTHRITIS
     Dates: end: 20111201
  5. SIMVASTATIN [Suspect]
     Indication: BLOOD CHOLESTEROL INCREASED
     Dates: end: 20111001
  6. THIAZIDE [Concomitant]
     Indication: BLOOD PRESSURE INCREASED
  7. LIPITOR [Suspect]
     Indication: BLOOD CHOLESTEROL INCREASED
     Route: 048
  8. NAPROXEN [Suspect]
     Dates: end: 20111201
  9. CELEBREX [Suspect]
     Indication: POLYARTHRITIS
  10. ACETAZOLAMIDE [Suspect]
     Indication: EYE OEDEMA
  11. KETOROLAC TROMETHAMINE [Suspect]
     Indication: EYE OEDEMA
  12. LEVOXYL [Concomitant]
     Indication: HYPOTHYROIDISM
  13. OMNIPRED [Suspect]
     Indication: EYE OEDEMA
  14. CORTISONE ACETATE [Suspect]
     Indication: EYE OEDEMA
     Dates: start: 20110501

REACTIONS (6)
  - PAIN [None]
  - EYE OEDEMA [None]
  - VISUAL ACUITY REDUCED [None]
  - VISION BLURRED [None]
  - INTRAOCULAR PRESSURE INCREASED [None]
  - DRUG INEFFECTIVE [None]
